FAERS Safety Report 4771334-6 (Version None)
Quarter: 2005Q3

REPORT INFORMATION
  Report Type: 
  Country: None (occurrence: None)
  Receive Date: 20050915
  Receipt Date: 20050810
  Transmission Date: 20060218
  Serious: Yes (Hospitalization, Other)
  Sender: FDA-Public Use
  Company Number: US-MERCK-0508USA02011

PATIENT
  Age: 55 Year
  Sex: Male
  Weight: 91 kg

DRUGS (31)
  1. VIOXX [Suspect]
     Indication: BACK PAIN
     Route: 048
     Dates: start: 20000101, end: 20040101
  2. VIOXX [Suspect]
     Indication: ARTHRITIS
     Route: 048
     Dates: start: 20000101, end: 20040101
  3. VASOTEC RPD [Concomitant]
     Route: 048
  4. PRILOSEC [Concomitant]
     Route: 065
  5. HYDRODIURIL [Concomitant]
     Route: 048
  6. COREG [Concomitant]
     Route: 065
  7. ECOTRIN [Concomitant]
     Route: 065
  8. MECLIZINE [Concomitant]
     Route: 065
  9. METRONIDAZOLE [Concomitant]
     Route: 065
  10. PEPCID [Concomitant]
     Route: 065
  11. METOCLOPRAMIDE [Concomitant]
     Route: 065
  12. NAPROXEN [Concomitant]
     Route: 065
  13. AMOXICILLIN [Concomitant]
     Route: 065
  14. ULTRAM [Concomitant]
     Route: 065
  15. DICLOXACILLIN [Concomitant]
     Route: 065
  16. FUROSEMIDE [Concomitant]
     Route: 065
  17. ACCUPRIL [Concomitant]
     Route: 065
  18. K-DUR 10 [Concomitant]
     Route: 065
  19. PRAVACHOL [Concomitant]
     Route: 065
  20. PLAVIX [Concomitant]
     Route: 065
  21. NORVASC [Concomitant]
     Route: 065
  22. AVAPRO [Concomitant]
     Route: 065
  23. ALBUTEROL [Concomitant]
     Route: 065
  24. MYTUSSIN AC [Concomitant]
     Route: 065
  25. ZITHROMAX [Concomitant]
     Route: 065
  26. IBUPROFEN [Concomitant]
     Route: 065
  27. NEXIUM [Concomitant]
     Route: 065
  28. CEPHALEXIN [Concomitant]
     Route: 065
  29. ACETAMINOPHEN AND CODEINE [Concomitant]
     Route: 065
  30. LEVAQUIN [Concomitant]
     Route: 065
  31. LIPITOR [Concomitant]
     Route: 065

REACTIONS (4)
  - CEREBROVASCULAR ACCIDENT [None]
  - CHEST PAIN [None]
  - MYOCARDIAL INFARCTION [None]
  - PAIN IN EXTREMITY [None]
